FAERS Safety Report 12155089 (Version 4)
Quarter: 2016Q3

REPORT INFORMATION
  Report Type: Spontaneous
  Country: US (occurrence: US)
  Receive Date: 20160307
  Receipt Date: 20160704
  Transmission Date: 20161109
  Serious: Yes (Hospitalization)
  Sender: FDA-Public Use
  Company Number: US-HORIZON-PRE-0078-2016

PATIENT
  Age: 77 Year
  Sex: Female

DRUGS (14)
  1. ATORVASTATIN [Concomitant]
     Active Substance: ATORVASTATIN
     Indication: PRODUCT USED FOR UNKNOWN INDICATION
     Dates: start: 201601
  2. SERTALINE [Concomitant]
     Active Substance: SERTRALINE HYDROCHLORIDE
     Indication: DEPRESSION
     Dosage: 150 MG
     Route: 048
     Dates: start: 201502
  3. LEVOKIT CA [Concomitant]
     Indication: PROPHYLAXIS
     Dosage: 1 DF BID
     Dates: start: 1995
  4. VALACYCLOVIR HYDROCHLORIDE. [Concomitant]
     Active Substance: VALACYCLOVIR HYDROCHLORIDE
     Indication: GENITAL HERPES SIMPLEX
     Dosage: 500 MG
     Route: 048
     Dates: start: 2012
  5. CLONAZEPAM. [Concomitant]
     Active Substance: CLONAZEPAM
     Indication: DEPRESSION
     Dosage: 2 MG
     Route: 048
     Dates: start: 2000
  6. PREDNISONE. [Suspect]
     Active Substance: PREDNISONE
     Indication: MYELOFIBROSIS
     Dosage: 40 MG QD REDUCED TO 20 MG QD ON 14-DEC-2015
     Route: 048
     Dates: start: 20151212, end: 20160221
  7. OMEPRAZOLE. [Concomitant]
     Active Substance: OMEPRAZOLE
     Indication: PRODUCT USED FOR UNKNOWN INDICATION
     Dosage: 20 MG
     Route: 048
     Dates: start: 201411
  8. DILTIAZEM. [Concomitant]
     Active Substance: DILTIAZEM
     Indication: PRODUCT USED FOR UNKNOWN INDICATION
     Dates: start: 201601
  9. ALLOPURINOL. [Concomitant]
     Active Substance: ALLOPURINOL
     Indication: PRODUCT USED FOR UNKNOWN INDICATION
     Dates: start: 201601
  10. DRONABINOL. [Concomitant]
     Active Substance: DRONABINOL
     Indication: WEIGHT DECREASED
     Dosage: 20 MG
     Route: 048
     Dates: start: 201504
  11. TEMAZEPAM. [Concomitant]
     Active Substance: TEMAZEPAM
     Indication: INSOMNIA
     Dosage: 30 MG
     Route: 048
     Dates: start: 2000
  12. AMITRIPTYLINE [Concomitant]
     Active Substance: AMITRIPTYLINE
     Indication: DEPRESSION
     Dosage: 75 MG
     Route: 048
     Dates: start: 201406
  13. DANAZOL. [Suspect]
     Active Substance: DANAZOL
     Indication: MYELOFIBROSIS
     Dosage: 200 MG BID
     Route: 048
     Dates: start: 20151212, end: 20160221
  14. LEVOTHYROXINE. [Concomitant]
     Active Substance: LEVOTHYROXINE
     Indication: HYPOTHYROIDISM
     Dosage: 50 ?G
     Route: 048
     Dates: start: 2012

REACTIONS (10)
  - Acute kidney injury [Recovered/Resolved]
  - Rash [Recovered/Resolved]
  - Pneumonia [Unknown]
  - Thrombocytopenia [Unknown]
  - Petechiae [Unknown]
  - Stomatitis [Unknown]
  - Mental status changes [Recovered/Resolved]
  - Atrial flutter [Unknown]
  - Cardiac fibrillation [Unknown]
  - Encephalopathy [Unknown]

NARRATIVE: CASE EVENT DATE: 20151222
